FAERS Safety Report 10979528 (Version 2)
Quarter: 2015Q2

REPORT INFORMATION
  Report Type: Spontaneous
  Country: US (occurrence: US)
  Receive Date: 20150402
  Receipt Date: 20150626
  Transmission Date: 20150821
  Serious: Yes (Hospitalization)
  Sender: FDA-Public Use
  Company Number: US-BAYER-2015-098879

PATIENT
  Age: 21 Year
  Sex: Female

DRUGS (1)
  1. MIRENA [Suspect]
     Active Substance: LEVONORGESTREL
     Indication: CONTRACEPTION
     Dosage: 20 MCG/24HR, CONT
     Route: 015
     Dates: start: 20091216, end: 20120321

REACTIONS (7)
  - Injury [None]
  - Emotional distress [None]
  - Pelvic pain [None]
  - Device dislocation [None]
  - Anxiety [None]
  - Depression [None]
  - Embedded device [None]

NARRATIVE: CASE EVENT DATE: 2012
